FAERS Safety Report 5147300-8 (Version None)
Quarter: 2006Q4

REPORT INFORMATION
  Report Type: 
  Country: None (occurrence: None)
  Receive Date: 20061103
  Receipt Date: 20061020
  Transmission Date: 20070319
  Serious: Yes (Hospitalization)
  Sender: FDA-Public Use
  Company Number: RENA-11980

PATIENT
  Age: 19 Year
  Sex: Male

DRUGS (7)
  1. RENAGEL [Suspect]
     Indication: HYPERPHOSPHATAEMIA
     Dates: start: 20060101
  2. CALCIUM CARBONATE [Concomitant]
  3. PARICALCITOL [Concomitant]
  4. DIALYSIS VITAMIN [Concomitant]
  5. EPOGEN [Concomitant]
  6. METOPROLOL [Concomitant]
  7. CITALOPRAM HYDROBROMIDE [Concomitant]

REACTIONS (8)
  - BLOOD ALBUMIN DECREASED [None]
  - CALCIFICATION METASTATIC [None]
  - CALCINOSIS [None]
  - CHEST PAIN [None]
  - CRYPTOGENIC ORGANISING PNEUMONIA [None]
  - DYSPNOEA [None]
  - PULMONARY CALCIFICATION [None]
  - PULMONARY EMBOLISM [None]
